FAERS Safety Report 9291744 (Version 2)
Quarter: 2013Q3

REPORT INFORMATION
  Report Type: Spontaneous
  Country: JP (occurrence: JP)
  Receive Date: 20130516
  Receipt Date: 20130725
  Transmission Date: 20140515
  Serious: Yes (Hospitalization)
  Sender: FDA-Public Use
  Company Number: JP-009507513-1305JPN008210

PATIENT
  Age: 56 Year
  Sex: Female
  Weight: 50 kg

DRUGS (6)
  1. CLARITIN [Suspect]
     Indication: PRURITUS
     Dosage: 10 MG, QD
     Route: 048
     Dates: start: 20110423, end: 20110502
  2. HANGE-SHASHIN-TO [Suspect]
     Indication: GASTRIC DISORDER
     Dosage: 2.5 G, TID
     Route: 048
     Dates: start: 20110303, end: 20110502
  3. NAUSEA [Concomitant]
     Indication: GASTRIC DISORDER
     Dosage: 10 MG, TID
     Route: 048
     Dates: start: 20110423, end: 20110505
  4. ACINON [Concomitant]
     Indication: GASTRIC DISORDER
     Dosage: 150 MG, BID
     Route: 048
     Dates: start: 20110423, end: 20110502
  5. MUCOSTA [Concomitant]
     Indication: GASTRIC DISORDER
     Dosage: 100 MG, TID
     Route: 048
     Dates: start: 20110423, end: 20110502
  6. OMEPRAL [Concomitant]
     Indication: GASTRIC DISORDER
     Dosage: 20 MG, QD
     Route: 048
     Dates: start: 20110502, end: 20110505

REACTIONS (3)
  - Hepatic function abnormal [Recovered/Resolved]
  - Aspartate aminotransferase increased [None]
  - Alanine aminotransferase increased [None]
